FAERS Safety Report 14033592 (Version 2)
Quarter: 2017Q4

REPORT INFORMATION
  Report Type: Report from Study
  Country: None (occurrence: EC)
  Receive Date: 20171003
  Receipt Date: 20171108
  Transmission Date: 20180321
  Serious: Yes (Other)
  Sender: FDA-Public Use
  Company Number: EC-ABBVIE-17K-047-2116971-00

PATIENT
  Age: 69 Year
  Sex: Female
  Weight: 62.7 kg

DRUGS (1)
  1. HUMIRA [Suspect]
     Active Substance: ADALIMUMAB
     Indication: RHEUMATOID ARTHRITIS
     Route: 058
     Dates: start: 20130816, end: 20170823

REACTIONS (3)
  - Frequent bowel movements [Recovering/Resolving]
  - Eye irritation [Not Recovered/Not Resolved]
  - Diarrhoea haemorrhagic [Recovering/Resolving]

NARRATIVE: CASE EVENT DATE: 20170828
